FAERS Safety Report 4903630-3 (Version None)
Quarter: 2006Q1

REPORT INFORMATION
  Report Type: 
  Country: None (occurrence: None)
  Receive Date: 20060203
  Receipt Date: 20060119
  Transmission Date: 20060701
  Serious: Yes (Hospitalization)
  Sender: FDA-Public Use
  Company Number: 2006-00132

PATIENT
  Age: 61 Year
  Sex: Male

DRUGS (6)
  1. VELCADE [Suspect]
     Indication: NON-HODGKIN'S LYMPHOMA
     Dosage: 3.20 MG
     Dates: start: 20050919, end: 20051103
  2. SYNTHROID [Concomitant]
  3. AVAPRO [Concomitant]
  4. LORAZEPAM [Concomitant]
  5. VANCOMYCIN [Concomitant]
  6. FLAGYL [Concomitant]

REACTIONS (13)
  - ASPARTATE AMINOTRANSFERASE INCREASED [None]
  - BETA 2 MICROGLOBULIN INCREASED [None]
  - BLOOD GLUCOSE INCREASED [None]
  - CHOLELITHIASIS [None]
  - HERPES ZOSTER DISSEMINATED [None]
  - INFLAMMATION [None]
  - MALIGNANT NEOPLASM PROGRESSION [None]
  - NON-HODGKIN'S LYMPHOMA [None]
  - PLATELET COUNT DECREASED [None]
  - RASH PAPULAR [None]
  - SCAR [None]
  - SPLENOMEGALY [None]
  - WEIGHT DECREASED [None]
